FAERS Safety Report 6627169-2 (Version None)
Quarter: 2010Q1

REPORT INFORMATION
  Report Type: 
  Country: None (occurrence: None)
  Receive Date: 20100311
  Receipt Date: 20091117
  Transmission Date: 20100710
  Serious: No
  Sender: FDA-Public Use
  Company Number: A0817430A

PATIENT
  Age: 48 Year
  Sex: Female

DRUGS (2)
  1. NICORETTE [Suspect]
     Dates: start: 20091117, end: 20091117
  2. PRILOSEC [Concomitant]

REACTIONS (1)
  - DYSPEPSIA [None]
